FAERS Safety Report 8444753-4 (Version None)
Quarter: 2012Q2

REPORT INFORMATION
  Report Type: 
  Country: None (occurrence: None)
  Receive Date: 20120612
  Receipt Date: 20120612
  Transmission Date: 20120825
  Serious: No
  Sender: FDA-Public Use
  Company Number: None

PATIENT
  Sex: Female

DRUGS (6)
  1. LEUCOVORIN CALCIUM [Concomitant]
  2. PRILOSEC [Concomitant]
  3. CYMBALTA [Concomitant]
  4. ENBREL [Suspect]
     Indication: RHEUMATOID ARTHRITIS
     Dosage: 50MG WEEKLY SQ
     Route: 058
     Dates: start: 20111101
  5. METHOTREXATE [Concomitant]
  6. BACLOFEN [Concomitant]

REACTIONS (6)
  - INJECTION SITE DISCOLOURATION [None]
  - HEADACHE [None]
  - INJECTION SITE SWELLING [None]
  - VISUAL IMPAIRMENT [None]
  - UPPER RESPIRATORY TRACT INFECTION [None]
  - INJECTION SITE PRURITUS [None]
